FAERS Safety Report 21934254 (Version 1)
Quarter: 2023Q1

REPORT INFORMATION
  Report Type: Report from Study
  Country: DE (occurrence: DE)
  Receive Date: 20230201
  Receipt Date: 20230201
  Transmission Date: 20230417
  Serious: Yes (Other)
  Sender: FDA-Public Use
  Company Number: DE-ABBVIE-4290519

PATIENT
  Age: 55 Year
  Sex: Female
  Weight: 62 kg

DRUGS (9)
  1. HUMIRA [Suspect]
     Active Substance: ADALIMUMAB
     Indication: Product used for unknown indication
     Dosage: STRENGTH: 40 MG
     Route: 058
     Dates: start: 20110805, end: 2015
  2. HUMIRA [Suspect]
     Active Substance: ADALIMUMAB
     Indication: Product used for unknown indication
     Dosage: STRENGTH: 40 MG
     Route: 058
     Dates: start: 2015, end: 20220502
  3. METHOTREXATE [Concomitant]
     Active Substance: METHOTREXATE
     Indication: Rheumatoid arthritis
     Route: 058
     Dates: start: 2010
  4. PENTASA [Concomitant]
     Active Substance: MESALAMINE
     Indication: Crohn^s disease
     Route: 048
     Dates: start: 2011
  5. ASPIRIN [Concomitant]
     Active Substance: ASPIRIN
     Indication: Aortic occlusion
  6. Mucofalk [Concomitant]
     Indication: Crohn^s disease
     Route: 048
     Dates: start: 1995
  7. PANTOPRAZOLE SODIUM [Concomitant]
     Active Substance: PANTOPRAZOLE SODIUM
     Indication: Dyspepsia
     Route: 048
     Dates: start: 1995
  8. Faminita [Concomitant]
     Indication: Hormone therapy
     Route: 048
     Dates: start: 2017
  9. Bisoprosol [Concomitant]
     Indication: Hypertension
     Route: 048
     Dates: start: 2005

REACTIONS (5)
  - Aortic occlusion [Not Recovered/Not Resolved]
  - Hidradenitis [Recovering/Resolving]
  - Abscess [Recovered/Resolved]
  - Injection site pain [Recovered/Resolved]
  - Fistula [Recovered/Resolved]

NARRATIVE: CASE EVENT DATE: 20110805
